FAERS Safety Report 5456481-8 (Version None)
Quarter: 2007Q3

REPORT INFORMATION
  Report Type: 
  Country: None (occurrence: None)
  Receive Date: 20070918
  Receipt Date: 20070917
  Transmission Date: 20080115
  Serious: Yes (Hospitalization)
  Sender: FDA-Public Use
  Company Number: BR-BRISTOL-MYERS SQUIBB COMPANY-13894936

PATIENT
  Age: 58 Year
  Sex: Female

DRUGS (1)
  1. ABATACEPT [Suspect]
     Indication: RHEUMATOID ARTHRITIS
     Dosage: 16-APR-03 TO 15-MAR-2004; 12-APR-2004 - CONTN
     Route: 042
     Dates: start: 20030416

REACTIONS (3)
  - CELLULITIS [None]
  - NEPHRITIS [None]
  - RENAL FAILURE ACUTE [None]
